FAERS Safety Report 21350772 (Version 12)
Quarter: 2025Q4

REPORT INFORMATION
  Report Type: Report from Study
  Country: BR (occurrence: BR)
  Receive Date: 20220919
  Receipt Date: 20251013
  Transmission Date: 20260117
  Serious: Yes (Other)
  Sender: NOVARTIS
  Company Number: BR-NOVARTISPH-NVSC2022BR178516

PATIENT
  Age: 55 Year
  Sex: Female
  Weight: 51 kg

DRUGS (20)
  1. KISQALI [Suspect]
     Active Substance: RIBOCICLIB SUCCINATE
     Indication: Product used for unknown indication
     Dosage: 3 DOSAGE FORM, QD (USES FOR 21 DAYS AND TAKES A BREAK FOR 7 DAYS, ACCORDING TO MEDICAL PRESCRIPTION)
     Route: 048
     Dates: start: 20220801
  2. KISQALI [Suspect]
     Active Substance: RIBOCICLIB SUCCINATE
     Dosage: UNK
     Route: 065
     Dates: start: 20220801
  3. KISQALI [Suspect]
     Active Substance: RIBOCICLIB SUCCINATE
     Dosage: 2 DOSAGE FORM, QD
     Route: 048
     Dates: start: 20220817
  4. KISQALI [Suspect]
     Active Substance: RIBOCICLIB SUCCINATE
     Dosage: 2 DOSAGE FORM, QD
     Route: 048
     Dates: start: 20220831
  5. KISQALI [Suspect]
     Active Substance: RIBOCICLIB SUCCINATE
     Dosage: 2 DOSAGE FORM, QD (USES FOR 21 DAYS AND TAKES A BREAK FOR 7 DAYS, ACCORDING TO MEDICAL PRESCRIPTION
     Route: 048
     Dates: start: 20220914
  6. KISQALI [Suspect]
     Active Substance: RIBOCICLIB SUCCINATE
     Dosage: 2 DOSAGE FORM (USING 2 TABLETS OF RIBOCICLIB)
     Route: 065
  7. KISQALI [Suspect]
     Active Substance: RIBOCICLIB SUCCINATE
     Dosage: 2 DOSAGE FORM, (PER 21 DAYS)
     Route: 065
  8. KISQALI [Suspect]
     Active Substance: RIBOCICLIB SUCCINATE
     Dosage: 2 DOSAGE FORM, BID (2 TABLETS A DAY)
     Route: 065
     Dates: start: 20240507
  9. ANASTROZOLE [Suspect]
     Active Substance: ANASTROZOLE
     Indication: Bone cancer
     Dosage: 1 DOSAGE FORM, QD (TABLET)
     Route: 048
     Dates: start: 20220801
  10. ANASTROZOLE [Suspect]
     Active Substance: ANASTROZOLE
     Indication: Breast cancer recurrent
  11. ZOMETA [Suspect]
     Active Substance: ZOLEDRONIC ACID
     Indication: Bone cancer
     Dosage: UNK, Q3MO (APPLICATION OF 1 BOTTLE)
     Route: 042
     Dates: start: 20220801
  12. ZOMETA [Suspect]
     Active Substance: ZOLEDRONIC ACID
     Indication: Breast cancer recurrent
  13. CALCIUM [Concomitant]
     Active Substance: CALCIUM
     Indication: Mineral supplementation
     Dosage: UNK UNK, Q12H
     Route: 065
  14. CALCIUM [Concomitant]
     Active Substance: CALCIUM
     Dosage: 1 DOSAGE FORM, Q8H
     Route: 048
     Dates: start: 20220801
  15. MINERALS\VITAMINS [Concomitant]
     Active Substance: MINERALS\VITAMINS
     Indication: Mineral supplementation
     Dosage: 1 DOSAGE FORM, Q12H
     Route: 048
     Dates: start: 20220801
  16. CALCIUM CARBONATE\CHOLECALCIFEROL [Concomitant]
     Active Substance: CALCIUM CARBONATE\CHOLECALCIFEROL
     Indication: Bone cancer
     Dosage: 1 DOSAGE FORM, Q12H (FITOBIO)
     Route: 048
     Dates: start: 20220801
  17. Topazol [Concomitant]
     Indication: Hyperthyroidism
     Dosage: 5 MG, QD (TABLET OF 5MG)
     Route: 048
     Dates: start: 202203
  18. Topazol [Concomitant]
     Dosage: 1 DOSAGE FORM, QD
     Route: 048
     Dates: start: 202203
  19. PROPRANOLOL [Concomitant]
     Active Substance: PROPRANOLOL HYDROCHLORIDE
     Indication: Hypertension
     Dosage: 1 DOSAGE FORM, BID (STARTED FROM: MANY YEARS AGO)
     Route: 048
  20. HYDROCHLOROTHIAZIDE [Concomitant]
     Active Substance: HYDROCHLOROTHIAZIDE
     Indication: Hypertension
     Dosage: 1 DOSAGE FORM, BID (STARTED FROM 2 YEARS AGO)
     Route: 048

REACTIONS (23)
  - Decreased immune responsiveness [Recovered/Resolved]
  - Decreased immune responsiveness [Recovered/Resolved]
  - Retching [Recovered/Resolved]
  - Hypertension [Not Recovered/Not Resolved]
  - Abdominal distension [Recovered/Resolved]
  - Malaise [Recovered/Resolved]
  - Gastrooesophageal reflux disease [Recovered/Resolved]
  - Eating disorder [Recovered/Resolved]
  - Rhinitis [Recovered/Resolved]
  - Nasal discomfort [Recovered/Resolved]
  - Headache [Recovered/Resolved]
  - Nausea [Recovered/Resolved]
  - Vomiting [Recovered/Resolved]
  - Ocular hyperaemia [Recovered/Resolved]
  - Confusional state [Unknown]
  - Retching [Recovered/Resolved]
  - Off label use [Unknown]
  - Platelet count abnormal [Unknown]
  - Decreased immune responsiveness [Unknown]
  - Tremor [Unknown]
  - Anxiety [Recovering/Resolving]
  - Nervousness [Unknown]
  - Memory impairment [Unknown]

NARRATIVE: CASE EVENT DATE: 20220801
